FAERS Safety Report 9353650 (Version 1)
Quarter: 2013Q2

REPORT INFORMATION
  Report Type: Spontaneous
  Country: US (occurrence: US)
  Receive Date: 20130618
  Receipt Date: 20130618
  Transmission Date: 20140414
  Serious: No
  Sender: FDA-Public Use
  Company Number: US-BAYER-2013-074700

PATIENT
  Age: 48 Year
  Sex: Female

DRUGS (1)
  1. GADAVIST [Suspect]
     Indication: UTERINE LEIOMYOMA
     Dosage: 7 ML, AT 1.5ML/SEC, POWER INJECTED
     Route: 042
     Dates: start: 20130610, end: 20130610

REACTIONS (1)
  - Nausea [None]
